FAERS Safety Report 11171613 (Version 1)
Quarter: 2015Q2

REPORT INFORMATION
  Report Type: Spontaneous
  Country: US (occurrence: None)
  Receive Date: 20150605
  Receipt Date: 20150605
  Transmission Date: 20150821
  Serious: Yes (Disabling)
  Sender: FDA-Public Use
  Company Number: None

PATIENT
  Age: 31 Year
  Sex: Female
  Weight: 69.85 kg

DRUGS (2)
  1. NUVARING [Suspect]
     Active Substance: ETHINYL ESTRADIOL\ETONOGESTREL
     Indication: CONTRACEPTION
  2. CENTRUM DAILY VITAMIN [Concomitant]

REACTIONS (12)
  - Menstruation delayed [None]
  - Ovulation disorder [None]
  - Vulvovaginal dryness [None]
  - Headache [None]
  - Abdominal distension [None]
  - Local swelling [None]
  - Alopecia [None]
  - Peripheral swelling [None]
  - Muscle spasms [None]
  - Weight increased [None]
  - Menstrual disorder [None]
  - Breast swelling [None]

NARRATIVE: CASE EVENT DATE: 20140209
